FAERS Safety Report 14428580 (Version 1)
Quarter: 2018Q1

REPORT INFORMATION
  Report Type: Spontaneous
  Country: US (occurrence: US)
  Receive Date: 20180123
  Receipt Date: 20180123
  Transmission Date: 20180509
  Serious: Yes (Hospitalization)
  Sender: FDA-Public Use
  Company Number: None

PATIENT
  Age: 79 Year
  Sex: Female
  Weight: 78.8 kg

DRUGS (3)
  1. 5-FLUOROURACIL (5-FU) [Suspect]
     Active Substance: FLUOROURACIL
     Dates: end: 20171229
  2. ELOXATIN [Suspect]
     Active Substance: OXALIPLATIN
     Dates: end: 20171227
  3. LEUCOVORIN CALCIUM. [Suspect]
     Active Substance: LEUCOVORIN CALCIUM
     Dates: end: 20171227

REACTIONS (7)
  - Diarrhoea [None]
  - Hypomagnesaemia [None]
  - Dizziness [None]
  - Hypokalaemia [None]
  - Asthenia [None]
  - Hypotension [None]
  - Acute kidney injury [None]

NARRATIVE: CASE EVENT DATE: 20180109
